FAERS Safety Report 16750285 (Version 1)
Quarter: 2019Q3

REPORT INFORMATION
  Report Type: Spontaneous
  Country: DE (occurrence: DE)
  Receive Date: 20190828
  Receipt Date: 20190828
  Transmission Date: 20191005
  Serious: Yes (Other)
  Sender: FDA-Public Use
  Company Number: DE-PFIZER INC-2019365141

PATIENT
  Age: 83 Year
  Sex: Male

DRUGS (1)
  1. HALCION [Suspect]
     Active Substance: TRIAZOLAM
     Dosage: UNK

REACTIONS (2)
  - Incorrect product administration duration [Unknown]
  - Renal cell carcinoma [Recovered/Resolved]
